FAERS Safety Report 5280494-2 (Version None)
Quarter: 2007Q1

REPORT INFORMATION
  Report Type: 
  Country: None (occurrence: None)
  Receive Date: 20061229
  Receipt Date: 20060821
  Transmission Date: 20070707
  Serious: Yes (Other)
  Sender: FDA-Public Use
  Company Number: 2006UW16578

PATIENT
  Age: 71 Year
  Sex: Female
  Weight: 118.84 kg

DRUGS (8)
  1. CRESTOR [Suspect]
     Indication: BLOOD CHOLESTEROL INCREASED
     Dosage: 10 MG PO
     Route: 048
     Dates: start: 20060814
  2. PLAVIX [Concomitant]
  3. MONOPRIL [Concomitant]
  4. TOPROL-XL [Concomitant]
  5. AMARYL [Concomitant]
  6. SYNTHROID [Concomitant]
  7. ASPIRIN [Concomitant]
  8. PRILOSEC OTC [Concomitant]

REACTIONS (2)
  - DIARRHOEA [None]
  - GASTROOESOPHAGEAL REFLUX DISEASE [None]
